FAERS Safety Report 18924394 (Version 1)
Quarter: 2021Q1

REPORT INFORMATION
  Report Type: Spontaneous
  Country: US (occurrence: US)
  Receive Date: 20210223
  Receipt Date: 20210223
  Transmission Date: 20210420
  Serious: Yes (Other)
  Sender: FDA-Public Use
  Company Number: US-BRISTOL-MYERS SQUIBB COMPANY-BMS-2021-015889

PATIENT
  Age: 76 Year
  Sex: Female

DRUGS (2)
  1. ASPIRIN (E.C.) [Suspect]
     Active Substance: ASPIRIN
     Indication: CEREBROVASCULAR ACCIDENT
     Dosage: UNK
     Route: 065
  2. ELIQUIS [Suspect]
     Active Substance: APIXABAN
     Indication: PULMONARY EMBOLISM
     Dosage: 5 MILLIGRAM, BID
     Route: 048

REACTIONS (2)
  - Haemorrhage [Unknown]
  - Intentional product use issue [Unknown]
